FAERS Safety Report 7427740-4 (Version None)
Quarter: 2011Q2

REPORT INFORMATION
  Report Type: 
  Country: None (occurrence: None)
  Receive Date: 20110421
  Receipt Date: 20110412
  Transmission Date: 20111010
  Serious: Yes (Hospitalization)
  Sender: FDA-Public Use
  Company Number: US-ELI_LILLY_AND_COMPANY-US201104004065

PATIENT
  Age: 24 Year
  Sex: Male

DRUGS (1)
  1. ZYPREXA [Suspect]
     Indication: SCHIZOAFFECTIVE DISORDER
     Dosage: 10 MG, QD

REACTIONS (5)
  - INCORRECT DOSE ADMINISTERED [None]
  - DYSARTHRIA [None]
  - GAIT DISTURBANCE [None]
  - OVERDOSE [None]
  - BALANCE DISORDER [None]
